FAERS Safety Report 5227319-9 (Version None)
Quarter: 2007Q1

REPORT INFORMATION
  Report Type: 
  Country: None (occurrence: None)
  Receive Date: 20070202
  Receipt Date: 20070119
  Transmission Date: 20070707
  Serious: Yes (Other)
  Sender: FDA-Public Use
  Company Number: US-ELI_LILLY_AND_COMPANY-US200701001924

PATIENT
  Age: 34 Year
  Sex: Female

DRUGS (2)
  1. STRATTERA [Suspect]
     Indication: ATTENTION DEFICIT/HYPERACTIVITY DISORDER
     Dosage: 100 MG, UNK
     Dates: start: 20051130, end: 20061011
  2. STRATTERA [Suspect]
     Dosage: 100 MG, UNK
     Dates: start: 20061011, end: 20070101

REACTIONS (1)
  - RETINAL ARTERY OCCLUSION [None]
